FAERS Safety Report 15665075 (Version 1)
Quarter: 2018Q4

REPORT INFORMATION
  Report Type: Spontaneous
  Country: US (occurrence: US)
  Receive Date: 20181128
  Receipt Date: 20181128
  Transmission Date: 20190205
  Serious: Yes (Hospitalization)
  Sender: FDA-Public Use
  Company Number: None

PATIENT
  Sex: Female

DRUGS (2)
  1. PROMACTA [Suspect]
     Active Substance: ELTROMBOPAG OLAMINE
     Indication: THROMBOCYTOPENIA
     Dosage: ?          OTHER FREQUENCY:QOD;?
     Route: 048
     Dates: start: 20180821
  2. NORMAL SALINE INJECTION IV FLUSH [Concomitant]

REACTIONS (1)
  - Aplastic anaemia [None]
